FAERS Safety Report 4289725-9 (Version None)
Quarter: 2004Q1

REPORT INFORMATION
  Report Type: 
  Country: None (occurrence: None)
  Receive Date: 20040122
  Receipt Date: 20031124
  Transmission Date: 20041129
  Serious: Yes (Hospitalization, Other)
  Sender: FDA-Public Use
  Company Number: 2003120445

PATIENT
  Sex: Male

DRUGS (1)
  1. RELPAX [Suspect]
     Indication: MIGRAINE WITH AURA
     Dosage: 40 MG (ONCE, ORAL)
     Route: 047

REACTIONS (2)
  - BRADYCARDIA [None]
  - HYPOTENSION [None]
